FAERS Safety Report 20412434 (Version 2)
Quarter: 2022Q3

REPORT INFORMATION
  Report Type: Report from Study
  Country: CA (occurrence: CA)
  Receive Date: 20220201
  Receipt Date: 20220729
  Transmission Date: 20221026
  Serious: Yes (Other)
  Sender: FDA-Public Use
  Company Number: CA-MYLANLABS-2022M1007420

PATIENT
  Age: 77 Year
  Sex: Male

DRUGS (1)
  1. HULIO [Suspect]
     Active Substance: ADALIMUMAB-FKJP
     Indication: Rheumatoid arthritis
     Dosage: 40 MILLIGRAM (40 MG EVERY 10 DAYS)
     Route: 065

REACTIONS (3)
  - Pneumonia [Unknown]
  - Pain [Not Recovered/Not Resolved]
  - Off label use [Unknown]
